FAERS Safety Report 6859138-1 (Version None)
Quarter: 2010Q3

REPORT INFORMATION
  Report Type: 
  Country: None (occurrence: None)
  Receive Date: 20100719
  Receipt Date: 20080221
  Transmission Date: 20110219
  Serious: No
  Sender: FDA-Public Use
  Company Number: US-PFIZER INC-2008017663

PATIENT
  Sex: Male
  Weight: 74.8 kg

DRUGS (4)
  1. CHANTIX [Suspect]
  2. NEXIUM [Concomitant]
     Indication: GASTROOESOPHAGEAL REFLUX DISEASE
  3. LIPITOR [Concomitant]
     Indication: BLOOD CHOLESTEROL INCREASED
  4. MOTRIN [Concomitant]
     Indication: PAIN

REACTIONS (1)
  - CONSTIPATION [None]
